FAERS Safety Report 12104498 (Version 3)
Quarter: 2018Q1

REPORT INFORMATION
  Report Type: Spontaneous
  Country: GB (occurrence: GB)
  Receive Date: 20160223
  Receipt Date: 20180112
  Transmission Date: 20180508
  Serious: Yes (Death)
  Sender: FDA-Public Use
  Company Number: GB-PFIZER INC-2016106993

PATIENT
  Sex: Male

DRUGS (5)
  1. SERTRALINE HCL [Suspect]
     Active Substance: SERTRALINE HYDROCHLORIDE
     Dosage: UNK
  2. ETHYLPHENIDATE [Interacting]
     Active Substance: ETHYLPHENIDATE
     Dosage: UNK
  3. ZOPICLONE [Interacting]
     Active Substance: ZOPICLONE
     Dosage: UNK
  4. ARIPIPRAZOLE. [Interacting]
     Active Substance: ARIPIPRAZOLE
     Dosage: UNK
  5. METHADONE [Interacting]
     Active Substance: METHADONE HYDROCHLORIDE
     Dosage: UNK

REACTIONS (2)
  - Toxicity to various agents [Fatal]
  - Drug interaction [Fatal]
